FAERS Safety Report 13137989 (Version 1)
Quarter: 2017Q1

REPORT INFORMATION
  Report Type: Spontaneous
  Country: US (occurrence: US)
  Receive Date: 20170123
  Receipt Date: 20170123
  Transmission Date: 20170428
  Serious: No
  Sender: FDA-Public Use
  Company Number: US-UNITED THERAPEUTICS-UNT-2016-009910

PATIENT

DRUGS (2)
  1. LYRICA [Suspect]
     Active Substance: PREGABALIN
     Indication: INFUSION SITE PAIN
     Dosage: UNK
     Route: 065
     Dates: start: 2015
  2. REMODULIN [Suspect]
     Active Substance: TREPROSTINIL
     Indication: PRODUCT USED FOR UNKNOWN INDICATION
     Dosage: UNK
     Route: 058
     Dates: start: 2012

REACTIONS (3)
  - Infusion site pain [Recovering/Resolving]
  - Disease progression [Unknown]
  - Somnolence [Unknown]

NARRATIVE: CASE EVENT DATE: 2015
